FAERS Safety Report 9352785 (Version 2)
Quarter: 2013Q3

REPORT INFORMATION
  Report Type: Spontaneous
  Country: US (occurrence: US)
  Receive Date: 20130618
  Receipt Date: 20130813
  Transmission Date: 20140515
  Serious: Yes (Other)
  Sender: FDA-Public Use
  Company Number: US-THROMBOGENICS INC-JET-2013-167

PATIENT
  Sex: 0

DRUGS (2)
  1. JETREA [Suspect]
     Indication: VITREOUS ADHESIONS
     Dosage: 0.125 MG, ONE TIME DOSE
     Route: 031
     Dates: start: 20130603, end: 20130603
  2. HCTZ (HYDROCHLOROTHIAZIDE) [Concomitant]
     Indication: HYPERTENSION
     Dosage: 12.5 UNK, QD

REACTIONS (3)
  - Injection site extravasation [Unknown]
  - No therapeutic response [Unknown]
  - Eye pain [Recovered/Resolved]
